FAERS Safety Report 20292133 (Version 1)
Quarter: 2022Q1

REPORT INFORMATION
  Report Type: Spontaneous
  Country: US (occurrence: None)
  Receive Date: 20220104
  Receipt Date: 20220104
  Transmission Date: 20220423
  Serious: Yes (Other)
  Sender: FDA-Public Use
  Company Number: None

PATIENT
  Sex: Female
  Weight: 51.75 kg

DRUGS (1)
  1. BOTOX [Suspect]
     Active Substance: ONABOTULINUMTOXINA
     Indication: Skin wrinkling
     Dosage: OTHER QUANTITY : 48 UNITS;?
     Dates: start: 20211116, end: 20211116

REACTIONS (20)
  - Headache [None]
  - Night sweats [None]
  - Fatigue [None]
  - Diarrhoea [None]
  - Swelling face [None]
  - Nausea [None]
  - Dizziness [None]
  - Feeling abnormal [None]
  - Arthralgia [None]
  - Dysphagia [None]
  - Oropharyngeal pain [None]
  - Aphonia [None]
  - Musculoskeletal stiffness [None]
  - Influenza [None]
  - Photophobia [None]
  - Vision blurred [None]
  - Visual impairment [None]
  - Diplopia [None]
  - Eye pain [None]
  - Dry eye [None]
